FAERS Safety Report 20924175 (Version 3)
Quarter: 2022Q3

REPORT INFORMATION
  Report Type: Spontaneous
  Country: US (occurrence: US)
  Receive Date: 20220607
  Receipt Date: 20220801
  Transmission Date: 20221026
  Serious: Yes (Death, Hospitalization, Other)
  Sender: FDA-Public Use
  Company Number: US-TAKEDA-2022TUS035887

PATIENT
  Age: 58 Year
  Sex: Female
  Weight: 60 kg

DRUGS (2)
  1. LIVTENCITY [Suspect]
     Active Substance: MARIBAVIR
     Indication: Cytomegalovirus infection
     Dosage: 200 DOSAGE FORM, BID
     Route: 048
     Dates: start: 20220408
  2. LIVTENCITY [Suspect]
     Active Substance: MARIBAVIR
     Indication: Stem cell transplant
     Dosage: 200 MILLIGRAM, BID
     Route: 065
     Dates: start: 20220408

REACTIONS (3)
  - Death [Fatal]
  - Leukaemia recurrent [Unknown]
  - Infection [Unknown]

NARRATIVE: CASE EVENT DATE: 20220710
